FAERS Safety Report 7689605-2 (Version None)
Quarter: 2011Q3

REPORT INFORMATION
  Report Type: 
  Country: None (occurrence: None)
  Receive Date: 20110817
  Receipt Date: 20110812
  Transmission Date: 20111222
  Serious: Yes (Death, Hospitalization)
  Sender: FDA-Public Use
  Company Number: MW-PFIZER INC-2011176970

PATIENT
  Age: 34 Year
  Sex: Male

DRUGS (7)
  1. RIFABUTIN [Suspect]
     Dosage: UNK
     Dates: start: 20110118
  2. KALETRA [Suspect]
     Dosage: UNK
     Dates: start: 20110118
  3. COTRIM [Concomitant]
     Dosage: UNK
     Dates: start: 20090815
  4. ISONIAZID [Concomitant]
     Dosage: UNK
  5. RALTEGRAVIR [Suspect]
     Dosage: UNK
     Dates: start: 20110118
  6. CEFTRIAXONE [Concomitant]
     Dosage: UNK
     Dates: start: 20110707, end: 20110716
  7. IBRUPROFEN [Concomitant]
     Dosage: UNK
     Dates: start: 20110708, end: 20110714

REACTIONS (1)
  - MENINGITIS BACTERIAL [None]
